FAERS Safety Report 5927013-2 (Version None)
Quarter: 2008Q4

REPORT INFORMATION
  Report Type: 
  Country: None (occurrence: None)
  Receive Date: 20081021
  Receipt Date: 20081021
  Transmission Date: 20090506
  Serious: Yes (Other)
  Sender: FDA-Public Use
  Company Number: None

PATIENT
  Age: 5 Year
  Sex: Male
  Weight: 20.4119 kg

DRUGS (1)
  1. MEBENDAZOLE [Suspect]
     Indication: ENTEROBIASIS
     Dosage: 1 TABLET 1/REPEAT IN 2 WKS PO, 1 TIME DOSE
     Route: 048
     Dates: start: 20081017, end: 20081017

REACTIONS (3)
  - PYREXIA [None]
  - URTICARIA [None]
  - WHEEZING [None]
